FAERS Safety Report 5032700-7 (Version None)
Quarter: 2006Q2

REPORT INFORMATION
  Report Type: 
  Country: None (occurrence: None)
  Receive Date: 20060620
  Receipt Date: 20060620
  Transmission Date: 20061013
  Serious: Yes (Other)
  Sender: FDA-Public Use
  Company Number: None

PATIENT
  Age: 32 Year
  Sex: Female

DRUGS (1)
  1. CALCIUM CARBONATE TABLET  ASSORTED BERRIES ( CALCIUM CARBONATE) [Suspect]
     Indication: DYSPEPSIA
     Dosage: SEE DOSAGE TEXT / ORAL
     Route: 048
     Dates: start: 20050101

REACTIONS (2)
  - DRUG EXPOSURE DURING PREGNANCY [None]
  - GESTATIONAL DIABETES [None]
